FAERS Safety Report 12565889 (Version 1)
Quarter: 2016Q3

REPORT INFORMATION
  Report Type: Spontaneous
  Country: US (occurrence: US)
  Receive Date: 20160718
  Receipt Date: 20160718
  Transmission Date: 20161109
  Serious: No
  Sender: FDA-Public Use
  Company Number: US-BIOGEN-2016BI00264615

PATIENT
  Sex: Female
  Weight: 61.74 kg

DRUGS (1)
  1. TECFIDERA [Suspect]
     Active Substance: DIMETHYL FUMARATE
     Indication: MULTIPLE SCLEROSIS
     Route: 048

REACTIONS (5)
  - Erythema [Unknown]
  - Depressed mood [Unknown]
  - Pain in extremity [Unknown]
  - Feeling hot [Unknown]
  - Ear discomfort [Unknown]
